FAERS Safety Report 5711593-6 (Version None)
Quarter: 2008Q2

REPORT INFORMATION
  Report Type: 
  Country: None (occurrence: None)
  Receive Date: 20080421
  Receipt Date: 20080410
  Transmission Date: 20081010
  Serious: Yes (Other)
  Sender: FDA-Public Use
  Company Number: DE-WYE-H03668908

PATIENT
  Sex: Male

DRUGS (1)
  1. CORDAREX [Suspect]
     Route: 048
     Dates: start: 20080402

REACTIONS (1)
  - CHOLECYSTITIS [None]
